FAERS Safety Report 5996332-6 (Version None)
Quarter: 2008Q4

REPORT INFORMATION
  Report Type: 
  Country: None (occurrence: None)
  Receive Date: 20081212
  Receipt Date: 20081010
  Transmission Date: 20090506
  Serious: No
  Sender: FDA-Public Use
  Company Number: US-ABBOTT-08P-163-0481008-00

PATIENT
  Sex: Female
  Weight: 83.99 kg

DRUGS (8)
  1. HUMIRA [Suspect]
     Indication: BEHCET'S SYNDROME
     Route: 058
     Dates: start: 20080829, end: 20080913
  2. ESTROGENIC SUBSTANCE [Concomitant]
     Indication: HORMONE REPLACEMENT THERAPY
     Route: 062
  3. PROVENTAL HFA [Concomitant]
     Indication: ASTHMA
     Route: 055
  4. CROMOLYN SODIUM [Concomitant]
     Indication: ASTHMA
     Route: 055
  5. FLUTICASONE PROPIONATE [Concomitant]
     Indication: ASTHMA
     Route: 055
  6. NARINE [Concomitant]
     Indication: DRUG USE FOR UNKNOWN INDICATION
  7. PRAVASTATIN SODIUM [Concomitant]
     Indication: BLOOD CHOLESTEROL INCREASED
     Route: 048
  8. CARBAMAZEPINE [Concomitant]
     Indication: CONVULSION
     Route: 048

REACTIONS (4)
  - BLINDNESS [None]
  - HYPOAESTHESIA [None]
  - PARAESTHESIA [None]
  - UNEVALUABLE EVENT [None]
